FAERS Safety Report 21515425 (Version 1)
Quarter: 2022Q4

REPORT INFORMATION
  Report Type: Spontaneous
  Country: US (occurrence: US)
  Receive Date: 20221027
  Receipt Date: 20221027
  Transmission Date: 20230112
  Serious: Yes (Life-Threatening, Hospitalization, Other)
  Sender: FDA-Public Use
  Company Number: US-JUBILANT CADISTA PHARMACEUTICALS-2022JUB00389

PATIENT
  Age: 51 Year
  Sex: Male

DRUGS (6)
  1. PREDNISONE [Suspect]
     Active Substance: PREDNISONE
     Indication: Interstitial lung disease
     Dosage: 15 MG, 1X/DAY
  2. AZATHIOPRINE [Suspect]
     Active Substance: AZATHIOPRINE
     Indication: Interstitial lung disease
     Dosage: 150 MG, 1X/DAY
  3. RITUXIMAB [Suspect]
     Active Substance: RITUXIMAB
     Indication: Interstitial lung disease
     Dosage: 1000 MG X 2 DOSES EVERY 6 MONTHS
  4. OXYGEN [Concomitant]
     Active Substance: OXYGEN
     Indication: Interstitial lung disease
     Dosage: 4 LITERS; ON 4-5L OF OXYGEN
  5. OXYGEN [Concomitant]
     Active Substance: OXYGEN
     Dosage: 5 LITERS, ON 4-5L OF OXYGEN
  6. NINTEDANIB [Concomitant]
     Active Substance: NINTEDANIB
     Indication: Interstitial lung disease
     Dosage: 200 MG, 12 HOUR

REACTIONS (3)
  - COVID-19 pneumonia [Recovered/Resolved]
  - Breakthrough COVID-19 [Recovered/Resolved]
  - Vaccination failure [Unknown]
